FAERS Safety Report 10619336 (Version 1)
Quarter: 2014Q4

REPORT INFORMATION
  Report Type: Spontaneous
  Country: DE (occurrence: None)
  Receive Date: 20141126
  Receipt Date: 20141126
  Transmission Date: 20150529
  Serious: Yes (Hospitalization, Other)
  Sender: FDA-Public Use
  Company Number: 7335743

PATIENT
  Age: 59 Year
  Sex: Female

DRUGS (1)
  1. EUTHYROX (LEVOTHYROXINE SODIUM)  (LEVOTHYROXINE SODIUM) [Suspect]
     Active Substance: LEVOTHYROXINE SODIUM
     Indication: AUTOIMMUNE THYROIDITIS
     Route: 048
     Dates: start: 2012, end: 20140930

REACTIONS (5)
  - Malignant peritoneal neoplasm [None]
  - Vomiting [None]
  - Blood thyroid stimulating hormone increased [None]
  - Weight decreased [None]
  - Ovarian cancer [None]

NARRATIVE: CASE EVENT DATE: 20140908
